FAERS Safety Report 4563221-3 (Version None)
Quarter: 2005Q1

REPORT INFORMATION
  Report Type: 
  Country: None (occurrence: None)
  Receive Date: 20050128
  Receipt Date: 20050117
  Transmission Date: 20050727
  Serious: Yes (Hospitalization)
  Sender: FDA-Public Use
  Company Number: CA-JNJFOC-20050104697

PATIENT
  Age: 55 Year
  Sex: Male
  Weight: 95 kg

DRUGS (8)
  1. REMICADE [Suspect]
     Route: 042
  2. REMICADE [Suspect]
     Route: 042
  3. REMICADE [Suspect]
     Indication: ARTHRITIS
     Route: 042
  4. ARAVA [Concomitant]
  5. PLAQUENIL [Concomitant]
  6. SULFASALAZINE [Concomitant]
  7. HIGH BLOOD PRESSURE MEDICATION [Concomitant]
  8. PREDNISONE [Concomitant]

REACTIONS (6)
  - ARTHRITIS [None]
  - CHILLS [None]
  - DYSPNOEA [None]
  - FEELING ABNORMAL [None]
  - GASTROENTERITIS [None]
  - PYREXIA [None]
